FAERS Safety Report 6264649-6 (Version None)
Quarter: 2009Q3

REPORT INFORMATION
  Report Type: 
  Country: None (occurrence: None)
  Receive Date: 20090710
  Receipt Date: 20090702
  Transmission Date: 20100115
  Serious: Yes (Hospitalization)
  Sender: FDA-Public Use
  Company Number: PHHY2009FR27020

PATIENT
  Age: 42 Year
  Sex: Female

DRUGS (7)
  1. STALEVO 100 [Suspect]
     Indication: PARKINSON'S DISEASE
     Dosage: UNK
     Dates: start: 20090206
  2. SIFROL [Concomitant]
     Indication: PARKINSON'S DISEASE
  3. SELEGILINE [Concomitant]
     Indication: PARKINSON'S DISEASE
  4. TOCO [Concomitant]
  5. IBUPROFEN [Concomitant]
  6. LEVOTHYROX [Concomitant]
  7. PROPRANOLOL [Concomitant]

REACTIONS (6)
  - FALL [None]
  - HAEMORRHAGE [None]
  - HYPERHIDROSIS [None]
  - INJURY [None]
  - LIBIDO INCREASED [None]
  - MALAISE [None]
